FAERS Safety Report 11278407 (Version 1)
Quarter: 2015Q3

REPORT INFORMATION
  Report Type: Spontaneous
  Country: US (occurrence: None)
  Receive Date: 20150715
  Receipt Date: 20150715
  Transmission Date: 20151125
  Serious: No
  Sender: FDA-Public Use
  Company Number: DL2015-0568

PATIENT
  Age: 35 Year
  Sex: Female

DRUGS (3)
  1. METRONIDAZOLE. [Concomitant]
     Active Substance: METRONIDAZOLE
  2. MIFEPRISTONE TABLETS 200 MG DANCO LABS [Suspect]
     Active Substance: MIFEPRISTONE
     Indication: ABORTION INDUCED
     Route: 048
     Dates: start: 20150304
  3. MISOPROSTOL TABLETS 200 MCG [Suspect]
     Active Substance: MISOPROSTOL
     Route: 002
     Dates: start: 20150305

REACTIONS (5)
  - Syncope [None]
  - Haemorrhage [None]
  - Dizziness [None]
  - Abortion incomplete [None]
  - Anaemia [None]

NARRATIVE: CASE EVENT DATE: 20150306
